FAERS Safety Report 9736547 (Version 1)
Quarter: 2013Q4

REPORT INFORMATION
  Report Type: Spontaneous
  Country: US (occurrence: US)
  Receive Date: 20131206
  Receipt Date: 20131206
  Transmission Date: 20140711
  Serious: No
  Sender: FDA-Public Use
  Company Number: US-BIOGENIDEC-2013BI095582

PATIENT
  Age: 63 Year
  Sex: Female

DRUGS (8)
  1. TECFIDERA [Suspect]
     Indication: MULTIPLE SCLEROSIS
     Route: 048
  2. AMPYRA [Concomitant]
  3. ESTRADIOL [Concomitant]
  4. BACLOFEN [Concomitant]
  5. ATENOLOL [Concomitant]
  6. VITAMIN D3 [Concomitant]
  7. B COMPLEX [Concomitant]
  8. ADVIL [Concomitant]

REACTIONS (3)
  - Depression [Unknown]
  - Pruritus [Unknown]
  - Burning sensation [Unknown]
